FAERS Safety Report 8840187 (Version 3)
Quarter: 2012Q4

REPORT INFORMATION
  Report Type: 
  Country: FR (occurrence: FR)
  Receive Date: 20121015
  Receipt Date: 20121119
  Transmission Date: 20130627
  Serious: Yes (Hospitalization, Other)
  Sender: FDA-Public Use
  Company Number: US-009507513-2012SP031937

PATIENT
  Age: 49 Year
  Sex: Male

DRUGS (10)
  1. VICTRELIS [Suspect]
     Indication: HEPATITIS C
     Dosage: 800 mg, TID
     Route: 048
     Dates: start: 20120307, end: 20120423
  2. VICTRELIS [Suspect]
     Dosage: 800 mg, tid
     Dates: start: 20120724
  3. PEGASYS [Concomitant]
     Indication: HEPATITIS VIRAL
     Dosage: 180 ?g, QW
     Route: 058
     Dates: start: 20120215
  4. PEGASYS [Concomitant]
     Route: 058
  5. PEGASYS [Concomitant]
     Dosage: 180 Microgram, qw
     Dates: start: 20120702
  6. PEGASYS [Concomitant]
     Dosage: 90 Microgram, UNK
     Dates: start: 20120724
  7. COPEGUS [Concomitant]
     Indication: HEPATITIS C
     Dosage: TREATMENT WAS REINITIATED
     Route: 048
     Dates: start: 20120215, end: 20120423
  8. COPEGUS [Concomitant]
     Dosage: UNK
  9. PROPRANOLOL HYDROCHLORIDE [Concomitant]
     Indication: VARICES OESOPHAGEAL
     Dosage: 160 mg, QD
     Route: 048
     Dates: start: 20120215
  10. INEXIUM [Concomitant]
     Indication: GASTRIC ULCER
     Dosage: 20 mg, QD

REACTIONS (5)
  - Agranulocytosis [Recovered/Resolved]
  - Vomiting [Recovered/Resolved]
  - Pyrexia [Recovered/Resolved]
  - Anaemia [Recovered/Resolved]
  - Diarrhoea [Recovered/Resolved]
